FAERS Safety Report 7170803-1 (Version None)
Quarter: 2010Q4

REPORT INFORMATION
  Report Type: 
  Country: None (occurrence: None)
  Receive Date: 20101217
  Receipt Date: 20100512
  Transmission Date: 20110411
  Serious: Yes (Other)
  Sender: FDA-Public Use
  Company Number: PT-JNJFOC-20100506140

PATIENT
  Sex: Female

DRUGS (4)
  1. GYNO PEVARYL [Suspect]
     Indication: CANDIDIASIS
     Route: 067
  2. GYNO PEVARYL [Suspect]
  3. AMOXICILLIN [Concomitant]
     Indication: TONSILLITIS
     Route: 048
  4. UNSPECIFIED VAGINAL RING [Concomitant]
     Indication: CONTRACEPTION

REACTIONS (3)
  - FEELING HOT [None]
  - OEDEMA [None]
  - RASH ERYTHEMATOUS [None]
